FAERS Safety Report 4284990-6 (Version None)
Quarter: 2004Q1

REPORT INFORMATION
  Report Type: 
  Country: None (occurrence: None)
  Receive Date: 20040202
  Receipt Date: 20040120
  Transmission Date: 20041129
  Serious: Yes (Disabling)
  Sender: FDA-Public Use
  Company Number: 2004-00215

PATIENT
  Age: 55 Year
  Sex: Male

DRUGS (1)
  1. COLCHICUM JTL LIQ [Suspect]
     Indication: FAMILIAL MEDITERRANEAN FEVER
     Dosage: 2 MG, DAILY, ORAL
     Route: 048

REACTIONS (4)
  - BLINDNESS [None]
  - CORNEAL DISORDER [None]
  - CORNEAL PERFORATION [None]
  - IMPAIRED HEALING [None]
